FAERS Safety Report 4330427-8 (Version None)
Quarter: 2004Q2

REPORT INFORMATION
  Report Type: 
  Country: None (occurrence: None)
  Receive Date: 20040402
  Receipt Date: 20030819
  Transmission Date: 20050107
  Serious: No
  Sender: FDA-Public Use
  Company Number: US-BRISTOL-MYERS SQUIBB COMPANY-12360293

PATIENT
  Age: 18 Year
  Sex: Female
  Weight: 40 kg

DRUGS (8)
  1. HYDREA [Suspect]
     Indication: SICKLE CELL ANAEMIA
  2. TYLENOL (CAPLET) [Concomitant]
  3. DESFERAL [Concomitant]
  4. FOLIC ACID [Concomitant]
  5. MIRALAX [Concomitant]
  6. CLINDAMYCIN HCL [Concomitant]
  7. HEPARIN [Concomitant]
  8. TYLENOL W/ CODEINE [Concomitant]

REACTIONS (2)
  - EXTRADURAL ABSCESS [None]
  - URINARY RETENTION [None]
